FAERS Safety Report 8893391 (Version 2)
Quarter: 2012Q4

REPORT INFORMATION
  Report Type: 
  Country: JP (occurrence: JP)
  Receive Date: 20121108
  Receipt Date: 20121123
  Transmission Date: 20130627
  Serious: Yes (Other)
  Sender: FDA-Public Use
  Company Number: PHHY2012JP097082

PATIENT
  Age: 83 Year
  Sex: Female

DRUGS (4)
  1. EXELON PATCH [Suspect]
     Dosage: 18 mg, Daily
     Route: 062
  2. SERMION [Concomitant]
     Route: 048
  3. LIPITOR [Concomitant]
     Dosage: 50 mg, UNK
     Route: 048
  4. HERBESSER [Concomitant]
     Dosage: 60 mg, UNK
     Route: 048

REACTIONS (1)
  - Blood cholinesterase decreased [Unknown]
